FAERS Safety Report 5994578-4 (Version None)
Quarter: 2008Q4

REPORT INFORMATION
  Report Type: 
  Country: None (occurrence: None)
  Receive Date: 20081212
  Receipt Date: 20080910
  Transmission Date: 20090506
  Serious: No
  Sender: FDA-Public Use
  Company Number: US-ABBOTT-08P-163-0475496-00

PATIENT
  Sex: Female
  Weight: 61.29 kg

DRUGS (4)
  1. HUMIRA [Suspect]
     Indication: RHEUMATOID ARTHRITIS
     Dates: start: 20080430
  2. PREDNISONE TAB [Concomitant]
     Indication: PAIN
     Route: 048
     Dates: start: 20080330, end: 20080908
  3. PREDNISONE TAB [Concomitant]
     Route: 048
     Dates: start: 20080908
  4. INFLIXIMAB [Concomitant]
     Indication: DRUG USE FOR UNKNOWN INDICATION

REACTIONS (2)
  - PAIN [None]
  - SWELLING [None]
